FAERS Safety Report 22765774 (Version 2)
Quarter: 2024Q1

REPORT INFORMATION
  Report Type: Spontaneous
  Country: PT (occurrence: PT)
  Receive Date: 20230731
  Receipt Date: 20240319
  Transmission Date: 20240410
  Serious: Yes (Hospitalization, Other)
  Sender: FDA-Public Use
  Company Number: None

PATIENT
  Age: 88 Year
  Sex: Female

DRUGS (2)
  1. OLMESARTAN [Suspect]
     Active Substance: OLMESARTAN
     Indication: Thrombocytopenia
     Dosage: 20 MILLIGRAM
  2. METFORMIN HYDROCHLORIDE\VILDAGLIPTIN [Suspect]
     Active Substance: METFORMIN HYDROCHLORIDE\VILDAGLIPTIN
     Indication: Type 2 diabetes mellitus
     Dosage: 50MG+1000MG

REACTIONS (11)
  - Vitamin B12 deficiency [Recovering/Resolving]
  - Anaemia folate deficiency [Recovering/Resolving]
  - Vitamin B12 absorption test normal [Unknown]
  - Anaemia megaloblastic [Recovered/Resolved]
  - Hypotension [Unknown]
  - Tachycardia [Unknown]
  - Weight decreased [Unknown]
  - Mucosal discolouration [Unknown]
  - Pallor [Unknown]
  - Decreased appetite [Unknown]
  - Folate deficiency [Unknown]
